FAERS Safety Report 8816543 (Version 1)
Quarter: 2012Q4

REPORT INFORMATION
  Report Type: Spontaneous
  Country: US (occurrence: None)
  Receive Date: 20120927
  Receipt Date: 20120927
  Transmission Date: 20130627
  Serious: Yes (Death, Life-Threatening)
  Sender: FDA-Public Use
  Company Number: 1419788

PATIENT
  Age: 7 Year
  Sex: Male

DRUGS (1)
  1. EPINEPHRINE [Suspect]
     Route: 050

REACTIONS (7)
  - Coma [None]
  - Heart rate increased [None]
  - Blood pressure increased [None]
  - Heart rate decreased [None]
  - Blood pressure decreased [None]
  - Cardiac arrest [None]
  - Wrong drug administered [None]
